FAERS Safety Report 10039269 (Version 2)
Quarter: 2014Q2

REPORT INFORMATION
  Report Type: Spontaneous
  Country: US (occurrence: US)
  Receive Date: 20140326
  Receipt Date: 20140610
  Transmission Date: 20141212
  Serious: Yes (Other)
  Sender: FDA-Public Use
  Company Number: US-PFIZER INC-2014080508

PATIENT
  Age: 48 Year
  Sex: Female

DRUGS (2)
  1. LIPITOR [Suspect]
     Indication: LOW DENSITY LIPOPROTEIN INCREASED
     Dosage: 1 DF, 1X/DAY
     Route: 048
     Dates: start: 20030429, end: 200704
  2. LIPITOR [Suspect]
     Indication: CARDIOVASCULAR EVENT PROPHYLAXIS

REACTIONS (1)
  - Type 2 diabetes mellitus [Not Recovered/Not Resolved]
